FAERS Safety Report 17274358 (Version 2)
Quarter: 2020Q1

REPORT INFORMATION
  Report Type: Spontaneous
  Country: DE (occurrence: DE)
  Receive Date: 20200115
  Receipt Date: 20200124
  Transmission Date: 20200409
  Serious: Yes (Life-Threatening, Hospitalization)
  Sender: FDA-Public Use
  Company Number: DE-PURDUE PHARMA-GBR-2020-0074328

PATIENT
  Age: 61 Year
  Sex: Female

DRUGS (7)
  1. GABAPENTIN. [Interacting]
     Active Substance: GABAPENTIN
     Indication: PRODUCT USED FOR UNKNOWN INDICATION
     Dosage: 1 TABLET, SINGLE
     Route: 065
  2. URBASON                            /00049601/ [Concomitant]
     Active Substance: METHYLPREDNISOLONE
     Indication: ANTI-INFECTIVE THERAPY
     Dosage: UNK
  3. MST [MORPHINE SULFATE] [Interacting]
     Active Substance: MORPHINE SULFATE
     Indication: PAIN
     Dosage: 60 MG, BID (1 TABLET IN THE MORNING AND 1 TABLET IN THE EVENING, STRENGTH 60 MG)
     Route: 065
  4. TEGRETAL [Concomitant]
     Active Substance: CARBAMAZEPINE
  5. MST [MORPHINE SULFATE] [Suspect]
     Active Substance: MORPHINE SULFATE
     Indication: PAIN
     Dosage: 20 MG, DAILY (STRENGTH 20 MG) (20 MG BEFORE GOING TO BED)
     Route: 065
  6. MST [MORPHINE SULFATE] [Interacting]
     Active Substance: MORPHINE SULFATE
     Dosage: 30 MG, DAILY (1 TABLET IN THE AFTERNOON, STRENGTH 30 MG)
     Route: 065
  7. MST [MORPHINE SULFATE] [Interacting]
     Active Substance: MORPHINE SULFATE
     Dosage: UNK
     Route: 065
     Dates: start: 1995

REACTIONS (6)
  - Drug interaction [Unknown]
  - Body temperature decreased [Unknown]
  - Blood potassium decreased [Unknown]
  - Intensive care [Recovered/Resolved]
  - Metabolic disorder [Unknown]
  - Memory impairment [Unknown]

NARRATIVE: CASE EVENT DATE: 1999
